FAERS Safety Report 21472190 (Version 1)
Quarter: 2022Q4

REPORT INFORMATION
  Report Type: Spontaneous
  Country: NL (occurrence: NL)
  Receive Date: 20221018
  Receipt Date: 20221018
  Transmission Date: 20230113
  Serious: Yes (Other)
  Sender: FDA-Public Use
  Company Number: None

PATIENT

DRUGS (1)
  1. LAMICTAL [Suspect]
     Active Substance: LAMOTRIGINE
     Indication: Epilepsy
     Dosage: 100 MG (CHEWABLE TABLET, 100 MG (MILLIGRAMS),)
     Route: 065
     Dates: start: 20200214

REACTIONS (1)
  - Hypothyroidism [Not Recovered/Not Resolved]
